FAERS Safety Report 4617777-2 (Version None)
Quarter: 2005Q1

REPORT INFORMATION
  Report Type: 
  Country: None (occurrence: None)
  Receive Date: 20050324
  Receipt Date: 20050314
  Transmission Date: 20050727
  Serious: Yes (Hospitalization)
  Sender: FDA-Public Use
  Company Number: US-GLAXOSMITHKLINE-A0549516A

PATIENT
  Sex: Male
  Weight: 68.2 kg

DRUGS (8)
  1. ECOTRIN MAXIMUM STRENGTH TABLETS [Suspect]
     Indication: PROPHYLAXIS
     Dosage: 500MG PER DAY
     Route: 048
  2. VASOTEC [Concomitant]
     Indication: HYPERTENSION
     Dosage: 2.5MG TWICE PER DAY
     Route: 048
  3. FOLTX [Concomitant]
     Dosage: 1MG PER DAY
     Route: 048
  4. FLOMAX [Concomitant]
     Dosage: .4MG PER DAY
     Route: 048
  5. DETROL [Concomitant]
     Dosage: 4MG PER DAY
     Route: 048
  6. CENTRUM [Concomitant]
     Route: 048
  7. VITAMIN C [Concomitant]
     Route: 048
  8. ACCUPRIL [Concomitant]

REACTIONS (3)
  - ASTHENIA [None]
  - CORONARY ARTERY OCCLUSION [None]
  - WEIGHT DECREASED [None]
